FAERS Safety Report 7427250-4 (Version None)
Quarter: 2011Q2

REPORT INFORMATION
  Report Type: 
  Country: None (occurrence: None)
  Receive Date: 20110420
  Receipt Date: 20110418
  Transmission Date: 20111010
  Serious: Yes (Other)
  Sender: FDA-Public Use
  Company Number: US-PFIZER INC-2011030035

PATIENT
  Sex: Female

DRUGS (1)
  1. CHANTIX [Suspect]
     Indication: SMOKING CESSATION THERAPY
     Dosage: STARTING AND CONTINUING PACK WITH REFILL
     Dates: start: 20080819, end: 20081017

REACTIONS (7)
  - SUICIDAL IDEATION [None]
  - MOOD SWINGS [None]
  - HALLUCINATION, AUDITORY [None]
  - DYSARTHRIA [None]
  - DEPRESSION [None]
  - HALLUCINATION, VISUAL [None]
  - ANXIETY [None]
